FAERS Safety Report 10903419 (Version 1)
Quarter: 2015Q1

REPORT INFORMATION
  Report Type: Spontaneous
  Country: US (occurrence: None)
  Receive Date: 20150304
  Receipt Date: 20150304
  Transmission Date: 20150721
  Serious: Yes (Hospitalization)
  Sender: FDA-Public Use
  Company Number: None

PATIENT
  Age: 52 Year
  Sex: Male
  Weight: 51.71 kg

DRUGS (4)
  1. BEVACIZUMAB [Suspect]
     Active Substance: BEVACIZUMAB
     Dosage: Q3 WEEKS IV OCT 2014 UNTIL PD
     Route: 042
     Dates: start: 201410
  2. NORVASC [Concomitant]
     Active Substance: AMLODIPINE BESYLATE
  3. LISINOPRIL. [Concomitant]
     Active Substance: LISINOPRIL
  4. PEMETREXED [Suspect]
     Active Substance: PEMETREXED
     Indication: LUNG NEOPLASM MALIGNANT
     Dosage: Q3 WEEKS IV OCT 2014 UNTIL PD
     Route: 042
     Dates: start: 201410

REACTIONS (2)
  - Supraventricular tachycardia [None]
  - Dyspnoea [None]

NARRATIVE: CASE EVENT DATE: 20150228
